FAERS Safety Report 5012973-7 (Version None)
Quarter: 2006Q2

REPORT INFORMATION
  Report Type: 
  Country: None (occurrence: None)
  Receive Date: 20060530
  Receipt Date: 20060502
  Transmission Date: 20061013
  Serious: Yes (Hospitalization)
  Sender: FDA-Public Use
  Company Number: US-AVENTIS-200614045US

PATIENT
  Sex: Female
  Weight: 56.81 kg

DRUGS (8)
  1. LOVENOX [Suspect]
     Indication: HYPERCOAGULATION
     Dates: start: 20050101, end: 20060101
  2. LOVENOX [Suspect]
     Dates: start: 20060101, end: 20060501
  3. LOVENOX [Suspect]
     Indication: PREGNANCY
     Dates: start: 20050101, end: 20060101
  4. LOVENOX [Suspect]
     Dates: start: 20060101, end: 20060501
  5. PROCARDIA [Concomitant]
     Dosage: DOSE: UNKNOWN
  6. VITAMINS [Concomitant]
     Dosage: DOSE: UNKNOWN
  7. IRON [Concomitant]
     Dosage: DOSE: UNKNOWN
  8. CALCIUM WITH VITAMIN D [Concomitant]
     Dosage: DOSE: UNKNOWN

REACTIONS (9)
  - BLOOD PRESSURE INCREASED [None]
  - CEREBRAL HAEMORRHAGE [None]
  - DEATH NEONATAL [None]
  - DRUG EXPOSURE DURING PREGNANCY [None]
  - HYPERTENSION [None]
  - NEONATAL DISORDER [None]
  - PREMATURE LABOUR [None]
  - PROTEINURIA [None]
  - RENAL DISORDER [None]
